FAERS Safety Report 8510991 (Version 2)
Quarter: 2012Q4

REPORT INFORMATION
  Report Type: 
  Country: US (occurrence: US)
  Receive Date: 20120413
  Receipt Date: 20120921
  Transmission Date: 20130627
  Serious: Yes (Other)
  Sender: FDA-Public Use
  Company Number: US-ROCHE-791297

PATIENT
  Age: 25 None
  Sex: Female
  Weight: 65.83 kg

DRUGS (4)
  1. ACCUTANE [Suspect]
     Indication: ACNE
     Route: 065
     Dates: start: 200302, end: 200303
  2. ACCUTANE [Suspect]
     Route: 065
     Dates: start: 200303, end: 200307
  3. ACCUTANE [Suspect]
     Route: 065
  4. ADVIL [Concomitant]

REACTIONS (10)
  - Crohn^s disease [Unknown]
  - Emotional distress [Not Recovered/Not Resolved]
  - Inflammatory bowel disease [Unknown]
  - Depression [Unknown]
  - Fistula [Unknown]
  - Arthritis [Unknown]
  - Lip dry [Unknown]
  - Viral pharyngitis [Unknown]
  - Urinary tract infection [Unknown]
  - Dysuria [Unknown]
